FAERS Safety Report 23993093 (Version 1)
Quarter: 2024Q2

REPORT INFORMATION
  Report Type: Report from Study
  Country: GB (occurrence: GB)
  Receive Date: 20240620
  Receipt Date: 20240620
  Transmission Date: 20240716
  Serious: Yes (Hospitalization)
  Sender: FDA-Public Use
  Company Number: GB-TAKEDA-2024TUS040973

PATIENT
  Sex: Male

DRUGS (2)
  1. HUMAN IMMUNOGLOBULIN G [Suspect]
     Active Substance: HUMAN IMMUNOGLOBULIN G
     Indication: Multifocal motor neuropathy
     Dosage: 24 GRAM, 1/WEEK
     Route: 058
     Dates: start: 202312
  2. HUMAN IMMUNOGLOBULIN G [Suspect]
     Active Substance: HUMAN IMMUNOGLOBULIN G
     Dosage: UNK
     Route: 058

REACTIONS (9)
  - Peripheral vascular disorder [Not Recovered/Not Resolved]
  - Cyanosis [Not Recovered/Not Resolved]
  - Drug ineffective [Unknown]
  - General physical health deterioration [Unknown]
  - Radial nerve palsy [Unknown]
  - Muscular weakness [Not Recovered/Not Resolved]
  - Pallor [Unknown]
  - Infusion site pruritus [Unknown]
  - Infusion site swelling [Unknown]
